FAERS Safety Report 8827582 (Version 1)
Quarter: 2012Q4

REPORT INFORMATION
  Report Type: 
  Country: US (occurrence: US)
  Receive Date: 20121005
  Receipt Date: 20121005
  Transmission Date: 20130627
  Serious: Yes (Death)
  Sender: FDA-Public Use
  Company Number: US-ROCHE-1099872

PATIENT
  Age: 60 Year
  Sex: Male

DRUGS (8)
  1. ACTIVASE [Suspect]
     Indication: ACUTE MYOCARDIAL INFARCTION
     Route: 042
  2. ACTIVASE [Suspect]
     Route: 041
  3. ACTIVASE [Suspect]
     Route: 065
  4. MORPHINE SULPHATE DRIP [Concomitant]
     Dosage: 2-5 mg
     Route: 065
  5. COMPAZINE [Concomitant]
     Route: 042
  6. XANAX [Concomitant]
     Route: 065
  7. PROSOM [Concomitant]
     Route: 065
  8. TYLENOL [Concomitant]
     Route: 065

REACTIONS (3)
  - Respiratory failure [Fatal]
  - Dementia Alzheimer^s type [Fatal]
  - Haematoma [Unknown]
